FAERS Safety Report 9057162 (Version 1)
Quarter: 2013Q1

REPORT INFORMATION
  Report Type: Spontaneous
  Country: US (occurrence: US)
  Receive Date: 20130131
  Receipt Date: 20130131
  Transmission Date: 20140127
  Serious: Yes (Hospitalization, Disabling, Other)
  Sender: FDA-Public Use
  Company Number: US-TEVA-383046USA

PATIENT
  Sex: Male

DRUGS (3)
  1. CLARAVIS [Suspect]
     Route: 048
  2. ACCUTANE [Suspect]
  3. ROACCUTANE [Suspect]

REACTIONS (12)
  - Inflammatory bowel disease [Unknown]
  - Irritable bowel syndrome [Unknown]
  - Renal disorder [Unknown]
  - Diverticulitis [Unknown]
  - Colitis [Unknown]
  - Colitis ulcerative [Unknown]
  - Rectal haemorrhage [Unknown]
  - Diarrhoea [Unknown]
  - Anaemia [Unknown]
  - Abdominal pain [Unknown]
  - Gastrointestinal oedema [Unknown]
  - Gastrointestinal disorder [Unknown]
